FAERS Safety Report 7834048-1 (Version None)
Quarter: 2011Q4

REPORT INFORMATION
  Report Type: 
  Country: None (occurrence: None)
  Receive Date: 20111024
  Receipt Date: 20111024
  Transmission Date: 20120403
  Serious: Yes (Other)
  Sender: FDA-Public Use
  Company Number: None

PATIENT
  Sex: Female
  Weight: 79.378 kg

DRUGS (1)
  1. CYMBALTA [Suspect]
     Indication: DEPRESSION
     Dosage: 30MG
     Route: 048

REACTIONS (7)
  - WITHDRAWAL SYNDROME [None]
  - NAUSEA [None]
  - CHILLS [None]
  - NIGHT SWEATS [None]
  - CEREBRAL DISORDER [None]
  - PYREXIA [None]
  - VOMITING [None]
